FAERS Safety Report 5957545-2 (Version None)
Quarter: 2008Q4

REPORT INFORMATION
  Report Type: 
  Country: None (occurrence: None)
  Receive Date: 20081119
  Receipt Date: 20081107
  Transmission Date: 20090506
  Serious: Yes (Hospitalization)
  Sender: FDA-Public Use
  Company Number: US-RB-006127-08

PATIENT
  Age: 67 Year
  Sex: Female

DRUGS (2)
  1. MUCINEX [Suspect]
     Dosage: TOOK PRODUCT 08-OCT-2008 IN THE AFTERNOON, TOOK AGAIN 09-OCT-2008 AT 7AM
     Dates: start: 20081008
  2. MICARDIS [Concomitant]
     Indication: HYPERTENSION

REACTIONS (4)
  - AMNESIA [None]
  - CONFUSIONAL STATE [None]
  - DISORIENTATION [None]
  - DYSARTHRIA [None]
